FAERS Safety Report 9902902 (Version 2)
Quarter: 2014Q1

REPORT INFORMATION
  Report Type: Report from Study
  Country: CO (occurrence: CO)
  Receive Date: 20140217
  Receipt Date: 20140224
  Transmission Date: 20141002
  Serious: Yes (Death, Hospitalization, Other)
  Sender: FDA-Public Use
  Company Number: PHHY2014CO018123

PATIENT
  Age: 39 Year
  Sex: Male

DRUGS (5)
  1. SANDOSTATIN LAR [Suspect]
     Indication: ACROMEGALY
     Dosage: 30 MG, MONTHLY
     Route: 030
     Dates: start: 20120831
  2. OMEPRAZOLE [Concomitant]
     Dosage: UNK UKN, UNK
  3. LEVOTHYROXINE [Concomitant]
     Dosage: UNK UKN, UNK
  4. PREDNISOLONE [Concomitant]
     Dosage: UNK UKN, UNK
  5. PLASIL [Concomitant]
     Dosage: UNK UKN, UNK

REACTIONS (23)
  - Cardiac arrest [Fatal]
  - Haematemesis [Unknown]
  - Eye pain [Unknown]
  - CSF test abnormal [Unknown]
  - Haemorrhage [Unknown]
  - Post procedural fistula [Unknown]
  - Loss of consciousness [Unknown]
  - Meningitis [Unknown]
  - Bacterial sepsis [Unknown]
  - Septic rash [Unknown]
  - Pneumonia bacterial [Recovered/Resolved]
  - Pleural effusion [Unknown]
  - Swelling [Unknown]
  - Dyspnoea [Unknown]
  - Headache [Unknown]
  - Pituitary tumour benign [Unknown]
  - Vomiting [Unknown]
  - Phlebitis [Unknown]
  - Abasia [Unknown]
  - Hydrocephalus [Recovering/Resolving]
  - Post procedural infection [Unknown]
  - Convulsion [Unknown]
  - Aphasia [Unknown]
